FAERS Safety Report 25820578 (Version 2)
Quarter: 2025Q3

REPORT INFORMATION
  Report Type: Spontaneous
  Country: US (occurrence: US)
  Receive Date: 20250919
  Receipt Date: 20250922
  Transmission Date: 20251021
  Serious: No
  Sender: KARYOPHARM THERAPEUTICS
  Company Number: US-KARYOPHARM-2025KPT100728

PATIENT

DRUGS (8)
  1. SELINEXOR [Suspect]
     Active Substance: SELINEXOR
     Indication: Plasma cell myeloma in remission
     Route: 048
     Dates: start: 20220622
  2. ACYCLOVIR [Concomitant]
     Active Substance: ACYCLOVIR
  3. BACTRIM DS [Concomitant]
     Active Substance: SULFAMETHOXAZOLE\TRIMETHOPRIM
  4. DEXAMETHASONE [Concomitant]
     Active Substance: DEXAMETHASONE
  5. KYPROLIS [Concomitant]
     Active Substance: CARFILZOMIB
  6. DUREZOL [Concomitant]
     Active Substance: DIFLUPREDNATE
  7. TOBREX [Concomitant]
     Active Substance: TOBRAMYCIN
  8. ILEVRO [Concomitant]
     Active Substance: NEPAFENAC

REACTIONS (2)
  - Nausea [Recovered/Resolved]
  - Product dose omission issue [Unknown]

NARRATIVE: CASE EVENT DATE: 20220101
